FAERS Safety Report 10638156 (Version 1)
Quarter: 2014Q4

REPORT INFORMATION
  Report Type: Spontaneous
  Country: US (occurrence: None)
  Receive Date: 20141121
  Receipt Date: 20141121
  Transmission Date: 20150529
  Serious: No
  Sender: FDA-Public Use
  Company Number: 163-10004-14084946

PATIENT
  Age: 57 Year
  Sex: Female

DRUGS (8)
  1. METFORMIN (METFORMIN) (UNKNOWN) [Concomitant]
  2. GLIPIZIDE (GLIPIZIDE) (UNKNOWN) [Concomitant]
  3. OTEZLA [Suspect]
     Active Substance: APREMILAST
     Indication: PSORIATIC ARTHROPATHY
     Dosage: 60 MG, 2 IN 1 D, PO
     Route: 048
     Dates: start: 2014
  4. AMLODIPINE (AMLODIPINE) (UNKNOWN) [Concomitant]
  5. WELCHOL(COLESEVELAM HYDROCHLORIDE) (UNKNOWN) [Concomitant]
  6. FENOFIBRATE (FENOFIBRATE) (UNKNOWN) [Concomitant]
  7. NOVOLOG (INSULIN ASPART) (UNKNOWN) [Concomitant]
  8. HYDROCHLOROTHIAZIDE (HYDROCHLOROTHIAZIDE) (UNKNOWN) [Concomitant]

REACTIONS (2)
  - Headache [None]
  - Nausea [None]

NARRATIVE: CASE EVENT DATE: 20140811
